FAERS Safety Report 8791677 (Version 1)
Quarter: 2012Q4

REPORT INFORMATION
  Report Type: 
  Country: PH (occurrence: PH)
  Receive Date: 20120918
  Receipt Date: 20120918
  Transmission Date: 20130627
  Serious: Yes (Death, Other)
  Sender: FDA-Public Use
  Company Number: PHHY2012PH017560

PATIENT
  Age: 67 Year
  Sex: Female

DRUGS (2)
  1. GLIVEC [Suspect]
     Indication: GASTROINTESTINAL STROMAL TUMOUR
     Dosage: 400 mg, QD
     Dates: start: 20080228
  2. GLIVEC [Suspect]
     Dosage: 600 mg, QD

REACTIONS (9)
  - Cardio-respiratory arrest [Fatal]
  - Multi-organ failure [Fatal]
  - Gastrointestinal stromal tumour [Fatal]
  - Neoplasm progression [Unknown]
  - Malignant neoplasm progression [Unknown]
  - Pneumonia [Unknown]
  - Ascites [Unknown]
  - Faecaloma [Unknown]
  - Anaemia [Unknown]
